FAERS Safety Report 13832001 (Version 1)
Quarter: 2017Q3

REPORT INFORMATION
  Report Type: Spontaneous
  Country: US (occurrence: US)
  Receive Date: 20170803
  Receipt Date: 20170803
  Transmission Date: 20171127
  Serious: No
  Sender: FDA-Public Use
  Company Number: US-ROCHE-655244

PATIENT
  Age: 86 Year
  Sex: Female

DRUGS (7)
  1. OSCAL [Concomitant]
     Active Substance: CALCIUM CARBONATE
     Route: 065
  2. BONIVA [Suspect]
     Active Substance: IBANDRONATE SODIUM
     Route: 048
  3. CARVEDILOL. [Concomitant]
     Active Substance: CARVEDILOL
     Route: 065
  4. BONIVA [Suspect]
     Active Substance: IBANDRONATE SODIUM
     Indication: OSTEOPOROSIS
     Route: 048
     Dates: start: 200908, end: 200910
  5. TYLENOL [Concomitant]
     Active Substance: ACETAMINOPHEN
     Route: 065
  6. XANAX [Concomitant]
     Active Substance: ALPRAZOLAM
     Route: 065
  7. CALCITONIN [Concomitant]
     Active Substance: CALCITONIN
     Route: 065

REACTIONS (6)
  - Malaise [Unknown]
  - Diarrhoea [Recovered/Resolved]
  - Abdominal pain upper [Not Recovered/Not Resolved]
  - Constipation [Unknown]
  - Defaecation urgency [Not Recovered/Not Resolved]
  - Bone pain [Unknown]

NARRATIVE: CASE EVENT DATE: 20090905
